FAERS Safety Report 9526307 (Version 1)
Quarter: 2013Q3

REPORT INFORMATION
  Report Type: Spontaneous
  Country: US (occurrence: US)
  Receive Date: 20130916
  Receipt Date: 20130916
  Transmission Date: 20140515
  Serious: No
  Sender: FDA-Public Use
  Company Number: US-BAYER-2013-108724

PATIENT
  Age: 69 Year
  Sex: Female

DRUGS (2)
  1. CLIMARA [Suspect]
     Dosage: UNK
     Route: 062
  2. PROGESTERONE [Suspect]
     Route: 048

REACTIONS (1)
  - Fungal infection [None]
